FAERS Safety Report 6469552-4 (Version None)
Quarter: 2009Q4

REPORT INFORMATION
  Report Type: 
  Country: None (occurrence: None)
  Receive Date: 20091203
  Receipt Date: 20091123
  Transmission Date: 20100525
  Serious: Yes (Other)
  Sender: FDA-Public Use
  Company Number: US-CELGENEUS-163-21880-09101858

PATIENT
  Sex: Male

DRUGS (5)
  1. REVLIMID [Suspect]
     Route: 048
     Dates: start: 20090522, end: 20090902
  2. REVLIMID [Suspect]
     Route: 048
     Dates: start: 20091007
  3. ALKERAN [Concomitant]
     Indication: DRUG USE FOR UNKNOWN INDICATION
     Route: 065
     Dates: start: 20090515, end: 20090801
  4. ALKERAN [Concomitant]
     Route: 065
     Dates: start: 20091007
  5. PREDNISONE [Concomitant]
     Indication: DRUG USE FOR UNKNOWN INDICATION
     Route: 065
     Dates: start: 20090515

REACTIONS (3)
  - ANOSMIA [None]
  - FATIGUE [None]
  - PANCYTOPENIA [None]
